FAERS Safety Report 9691231 (Version 1)
Quarter: 2013Q4

REPORT INFORMATION
  Report Type: Spontaneous
  Country: US (occurrence: US)
  Receive Date: 20131115
  Receipt Date: 20131115
  Transmission Date: 20140711
  Serious: No
  Sender: FDA-Public Use
  Company Number: US-BAUSCH-BL-2013-002193

PATIENT
  Age: 54 Year
  Sex: Female

DRUGS (3)
  1. TOBRAMYCIN AND DEXAMETHASONE OPHTHALMIC SUSPENSION USP 0.3%/0.1% [Suspect]
     Indication: EYE INFECTION
     Dosage: 2 DROPS IN EACH EYE, TWO TIMES PER DAY
     Route: 047
     Dates: start: 20130322, end: 20130329
  2. METHYLPREDNISOLONE [Concomitant]
  3. CEFALEXIN [Concomitant]

REACTIONS (1)
  - Drug ineffective [Recovered/Resolved]
